FAERS Safety Report 8902366 (Version 4)
Quarter: 2013Q1

REPORT INFORMATION
  Report Type: Spontaneous
  Country: JP (occurrence: JP)
  Receive Date: 20121112
  Receipt Date: 20130301
  Transmission Date: 20140127
  Serious: Yes (Hospitalization, Other)
  Sender: FDA-Public Use
  Company Number: JP-PFIZER INC-2012280223

PATIENT
  Age: 71 Year
  Sex: Male
  Weight: 45 kg

DRUGS (3)
  1. LYRICA [Suspect]
     Indication: NEURALGIA
     Dosage: 50 MG/DAY
     Route: 048
     Dates: start: 20120907, end: 20121031
  2. VENILON [Suspect]
     Indication: GUILLAIN-BARRE SYNDROME
     Dosage: 20 MG/DAY
     Dates: start: 20121022, end: 20121026
  3. TAKEPRON [Concomitant]
     Indication: PROPHYLAXIS
     Dosage: 15 MG, 1X/DAY
     Route: 048
     Dates: start: 20121013

REACTIONS (1)
  - Cholestasis [Recovering/Resolving]
